FAERS Safety Report 6871018-4 (Version None)
Quarter: 2010Q3

REPORT INFORMATION
  Report Type: 
  Country: None (occurrence: None)
  Receive Date: 20100721
  Receipt Date: 20100709
  Transmission Date: 20110219
  Serious: Yes (Other)
  Sender: FDA-Public Use
  Company Number: CS-1182643

PATIENT
  Age: 10 Year
  Sex: Male

DRUGS (3)
  1. TOBREX [Suspect]
     Indication: EYE INJURY
     Dosage: OPHTHALMIC
     Route: 047
     Dates: start: 20100702, end: 20100703
  2. SODIUM CHLORIDE 0.9% [Concomitant]
  3. CHLORAMPHENICOL [Concomitant]

REACTIONS (6)
  - CORNEAL OEDEMA [None]
  - EYE INJURY [None]
  - EYE IRRITATION [None]
  - EYE PRURITUS [None]
  - EYELID OEDEMA [None]
  - OCULAR HYPERAEMIA [None]
